FAERS Safety Report 22807530 (Version 2)
Quarter: 2023Q4

REPORT INFORMATION
  Report Type: Report from Study
  Country: CA (occurrence: CA)
  Receive Date: 20230810
  Receipt Date: 20231107
  Transmission Date: 20240110
  Serious: Yes (Hospitalization, Other)
  Sender: FDA-Public Use
  Company Number: CA-JNJFOC-20230744086

PATIENT
  Age: 42 Year
  Sex: Female
  Weight: 90 kg

DRUGS (1)
  1. REMICADE [Suspect]
     Active Substance: INFLIXIMAB
     Indication: Colitis ulcerative
     Dosage: EXPIRY DATE- SEP-2025
     Route: 041
     Dates: start: 20200220

REACTIONS (7)
  - Lupus-like syndrome [Unknown]
  - Colitis ulcerative [Unknown]
  - Adverse drug reaction [Unknown]
  - Antiphospholipid antibodies positive [Unknown]
  - Illness [Not Recovered/Not Resolved]
  - Back pain [Unknown]
  - Treatment failure [Unknown]

NARRATIVE: CASE EVENT DATE: 20230701
